FAERS Safety Report 25705652 (Version 1)
Quarter: 2025Q3

REPORT INFORMATION
  Report Type: Spontaneous
  Country: IN (occurrence: IN)
  Receive Date: 20250820
  Receipt Date: 20250820
  Transmission Date: 20251021
  Serious: Yes (Hospitalization)
  Sender: MYLAN
  Company Number: IN-MYLANLABS-2025M1069496

PATIENT
  Age: 37 Year
  Sex: Female

DRUGS (16)
  1. POSACONAZOLE [Suspect]
     Active Substance: POSACONAZOLE
     Indication: Antifungal prophylaxis
  2. POSACONAZOLE [Suspect]
     Active Substance: POSACONAZOLE
     Route: 065
  3. POSACONAZOLE [Suspect]
     Active Substance: POSACONAZOLE
     Route: 065
  4. POSACONAZOLE [Suspect]
     Active Substance: POSACONAZOLE
  5. HYDROXYUREA [Concomitant]
     Active Substance: HYDROXYUREA
     Indication: Acute myeloid leukaemia
  6. HYDROXYUREA [Concomitant]
     Active Substance: HYDROXYUREA
     Route: 065
  7. HYDROXYUREA [Concomitant]
     Active Substance: HYDROXYUREA
     Route: 065
  8. HYDROXYUREA [Concomitant]
     Active Substance: HYDROXYUREA
  9. DAUNORUBICIN [Concomitant]
     Active Substance: DAUNORUBICIN
     Indication: Acute myeloid leukaemia
  10. DAUNORUBICIN [Concomitant]
     Active Substance: DAUNORUBICIN
     Route: 065
  11. DAUNORUBICIN [Concomitant]
     Active Substance: DAUNORUBICIN
     Route: 065
  12. DAUNORUBICIN [Concomitant]
     Active Substance: DAUNORUBICIN
  13. CYTARABINE [Concomitant]
     Active Substance: CYTARABINE
     Indication: Acute myeloid leukaemia
  14. CYTARABINE [Concomitant]
     Active Substance: CYTARABINE
     Route: 065
  15. CYTARABINE [Concomitant]
     Active Substance: CYTARABINE
     Route: 065
  16. CYTARABINE [Concomitant]
     Active Substance: CYTARABINE

REACTIONS (1)
  - Drug ineffective [Unknown]
